FAERS Safety Report 21458506 (Version 1)
Quarter: 2022Q4

REPORT INFORMATION
  Report Type: Spontaneous
  Country: CN (occurrence: CN)
  Receive Date: 20221014
  Receipt Date: 20221014
  Transmission Date: 20230113
  Serious: Yes (Hospitalization, Other)
  Sender: FDA-Public Use
  Company Number: CN-PFIZER INC-PV202200081579

PATIENT
  Age: 20 Day
  Sex: Male
  Weight: 1.7 kg

DRUGS (3)
  1. METHYLPREDNISOLONE SODIUM SUCCINATE [Suspect]
     Active Substance: METHYLPREDNISOLONE SODIUM SUCCINATE
     Indication: Immune thrombocytopenia
     Dosage: 1.7 MG, 2X/DAY
     Route: 041
     Dates: start: 20220913, end: 20220922
  2. METHYLPREDNISOLONE [Suspect]
     Active Substance: METHYLPREDNISOLONE
     Indication: Immune thrombocytopenia
     Dosage: 1.7 MG, 2X/DAY
     Route: 048
     Dates: start: 20220922, end: 20220926
  3. DEXTROSE [Suspect]
     Active Substance: DEXTROSE
     Indication: Vehicle solution use
     Dosage: 3 ML, 2X/DAY
     Route: 041
     Dates: start: 20220913, end: 20220922

REACTIONS (2)
  - Neonatal gastrointestinal haemorrhage [Recovering/Resolving]
  - Gastrointestinal infection [Recovering/Resolving]

NARRATIVE: CASE EVENT DATE: 20220926
